FAERS Safety Report 20237181 (Version 1)
Quarter: 2021Q4

REPORT INFORMATION
  Report Type: Spontaneous
  Country: US (occurrence: US)
  Receive Date: 20211228
  Receipt Date: 20211228
  Transmission Date: 20220303
  Serious: No
  Sender: FDA-Public Use
  Company Number: US-BAYER-2021A266815

PATIENT
  Age: 68 Year
  Sex: Male

DRUGS (4)
  1. NUBEQA [Suspect]
     Active Substance: DAROLUTAMIDE
     Dosage: 600 MG, BID
     Route: 048
  2. NUBEQA [Suspect]
     Active Substance: DAROLUTAMIDE
     Dosage: 300 MG, BID
     Route: 048
  3. NUBEQA [Suspect]
     Active Substance: DAROLUTAMIDE
     Dosage: 300 MG, TID
     Route: 048
  4. NUBEQA [Suspect]
     Active Substance: DAROLUTAMIDE
     Dosage: 300 MG, BID
     Route: 048

REACTIONS (4)
  - Peripheral swelling [None]
  - Rash pruritic [None]
  - Skin disorder [None]
  - Rash macular [None]
